FAERS Safety Report 7932607-9 (Version None)
Quarter: 2011Q4

REPORT INFORMATION
  Report Type: 
  Country: None (occurrence: None)
  Receive Date: 20111122
  Receipt Date: 20111114
  Transmission Date: 20120403
  Serious: No
  Sender: FDA-Public Use
  Company Number: US-BIOGENIDEC-2011BI043446

PATIENT
  Age: 48 Year
  Sex: Female

DRUGS (4)
  1. AVONEX [Suspect]
     Route: 030
     Dates: start: 20111021, end: 20111021
  2. AVONEX [Suspect]
     Indication: MULTIPLE SCLEROSIS
     Route: 030
     Dates: start: 20111014, end: 20111014
  3. AVONEX [Suspect]
     Route: 030
     Dates: start: 20111104, end: 20111111
  4. AVONEX [Suspect]
     Route: 030
     Dates: start: 20111028, end: 20111028

REACTIONS (8)
  - FATIGUE [None]
  - LOSS OF CONSCIOUSNESS [None]
  - HEADACHE [None]
  - PALPITATIONS [None]
  - NYSTAGMUS [None]
  - NAUSEA [None]
  - VERTIGO [None]
  - INFLUENZA LIKE ILLNESS [None]
